FAERS Safety Report 4956841-5 (Version None)
Quarter: 2006Q1

REPORT INFORMATION
  Report Type: 
  Country: None (occurrence: None)
  Receive Date: 20060323
  Receipt Date: 20060308
  Transmission Date: 20060701
  Serious: Yes (Hospitalization, Other)
  Sender: FDA-Public Use
  Company Number: US-2006-002176

PATIENT
  Age: 57 Year
  Sex: Female
  Weight: 63.4 kg

DRUGS (22)
  1. BETASERON [Suspect]
     Indication: RELAPSING-REMITTING MULTIPLE SCLEROSIS
     Dosage: SEE IMAGE
     Route: 058
     Dates: start: 19950629, end: 20000315
  2. BETASERON [Suspect]
     Indication: RELAPSING-REMITTING MULTIPLE SCLEROSIS
     Dosage: SEE IMAGE
     Route: 058
     Dates: start: 20050816, end: 20060209
  3. IMMUNE GLOBULIN INTRAVENOUS (HUMAN) [Concomitant]
  4. PREVACID (LANSORPAZOLE) [Concomitant]
  5. BUPROPION HCL [Concomitant]
  6. LEVOTHYROXINE SODIUM [Concomitant]
  7. SINGULAIR [Concomitant]
  8. POTASSIUM CHLORIDE [Concomitant]
  9. TRAZODONE HCL [Concomitant]
  10. ADVAIR DISKUS (SAMELTEROL XINOFOATE, FLUTICASONE PROPIONATE) [Concomitant]
  11. PHENERGAN [Concomitant]
  12. XANAX (LORAZEPAM) [Concomitant]
  13. KYTRIL [Concomitant]
  14. ZOFRAN [Concomitant]
  15. PROCRIT (ERYTHROPIETIN) [Concomitant]
  16. MAGNESIUM (MAGNESIUM) [Concomitant]
  17. ALLEGRA [Concomitant]
  18. MULTIVITAMINS (PANTHENOL, RETINOL) [Concomitant]
  19. PEPTO-BISMOL (BISMUTH SUBSALICYLATE) [Concomitant]
  20. ADVIL [Concomitant]
  21. TYLENOL (CAPLET) [Concomitant]
  22. ADVIL COLD + SINUS (PSUDOEPHEDRINE HYDROCHLORIDE) [Concomitant]

REACTIONS (16)
  - ENTEROCOCCAL INFECTION [None]
  - FEBRILE NEUTROPENIA [None]
  - FULL BLOOD COUNT ABNORMAL [None]
  - HEADACHE [None]
  - INFLUENZA LIKE ILLNESS [None]
  - INJECTION SITE RASH [None]
  - INJECTION SITE REACTION [None]
  - KIDNEY INFECTION [None]
  - NAUSEA [None]
  - PAIN [None]
  - PSEUDOMONAS INFECTION [None]
  - PYREXIA [None]
  - RED BLOOD CELL COUNT DECREASED [None]
  - URINARY TRACT INFECTION [None]
  - VOMITING [None]
  - WHITE BLOOD CELL COUNT DECREASED [None]
